FAERS Safety Report 17072289 (Version 1)
Quarter: 2019Q4

REPORT INFORMATION
  Report Type: Spontaneous
  Country: SE (occurrence: SE)
  Receive Date: 20191125
  Receipt Date: 20191125
  Transmission Date: 20200122
  Serious: Yes (Other)
  Sender: FDA-Public Use
  Company Number: SE-MYLANLABS-2019M1112901

PATIENT
  Age: 69 Year
  Sex: Female

DRUGS (3)
  1. IRINOTECAN [Suspect]
     Active Substance: IRINOTECAN
     Indication: PANCREATIC CARCINOMA
     Dosage: STYRKA 264,96  DOSERING 80%
     Route: 042
  2. ATROPINE. [Concomitant]
     Active Substance: ATROPINE
  3. OXALIPLATIN. [Suspect]
     Active Substance: OXALIPLATIN
     Indication: PANCREATIC CARCINOMA
     Dosage: STYRKA 125,12  DOSERING 80 %
     Route: 042

REACTIONS (2)
  - Muscle spasms [Unknown]
  - Dysarthria [Unknown]

NARRATIVE: CASE EVENT DATE: 20190429
